FAERS Safety Report 20732092 (Version 5)
Quarter: 2022Q3

REPORT INFORMATION
  Report Type: Spontaneous
  Country: FR (occurrence: FR)
  Receive Date: 20220420
  Receipt Date: 20220706
  Transmission Date: 20221027
  Serious: Yes (Hospitalization, Congenital Anomaly, Other)
  Sender: FDA-Public Use
  Company Number: FR-SA-SAC20220406000507

PATIENT
  Sex: Female
  Weight: 2 kg

DRUGS (15)
  1. SALAZOPYRINE [Suspect]
     Active Substance: SULFASALAZINE
     Indication: Prophylaxis
     Dosage: UNK
     Route: 064
  2. SALAZOPYRINE [Suspect]
     Active Substance: SULFASALAZINE
     Indication: Rheumatoid arthritis
  3. PLAQUENIL [Suspect]
     Active Substance: HYDROXYCHLOROQUINE SULFATE
     Indication: Prophylaxis
     Dosage: UNK
     Route: 064
  4. PLAQUENIL [Suspect]
     Active Substance: HYDROXYCHLOROQUINE SULFATE
     Indication: Rheumatoid arthritis
  5. PREDNISONE [Suspect]
     Active Substance: PREDNISONE
     Indication: Prophylaxis
     Dosage: UNK
     Route: 064
  6. PREDNISONE [Suspect]
     Active Substance: PREDNISONE
     Indication: Rheumatoid arthritis
  7. ACETAMINOPHEN [Suspect]
     Active Substance: ACETAMINOPHEN
     Indication: Prophylaxis
     Dosage: UNK
     Route: 064
  8. ACETAMINOPHEN [Suspect]
     Active Substance: ACETAMINOPHEN
     Indication: Rheumatoid arthritis
  9. DAFALGAN [Concomitant]
     Active Substance: ACETAMINOPHEN
     Dosage: UNK
     Route: 064
     Dates: start: 201109
  10. CEFTRIAXONE SODIUM [Concomitant]
     Active Substance: CEFTRIAXONE SODIUM
     Dosage: 300 MG, 1X/DAY
     Route: 064
  11. PHLOROGLUCINOL [Concomitant]
     Active Substance: PHLOROGLUCINOL
     Dosage: UNK
     Route: 064
     Dates: start: 201109
  12. ESOMEPRAZOLE MAGNESIUM [Concomitant]
     Active Substance: ESOMEPRAZOLE MAGNESIUM
     Indication: Polyarthritis
     Dosage: UNK
     Route: 064
  13. CEFIXIME [Concomitant]
     Active Substance: CEFIXIME
     Dosage: UNK
     Route: 064
     Dates: start: 20120710
  14. MAGNE B6 [Concomitant]
     Active Substance: MAGNESIUM\PYRIDOXINE
     Indication: Polyarthritis
     Dosage: UNK
     Route: 064
  15. AUGMENTIN [Concomitant]
     Active Substance: AMOXICILLIN\CLAVULANATE POTASSIUM
     Dosage: UNK
     Route: 064
     Dates: start: 201109

REACTIONS (60)
  - Maternal exposure during pregnancy [Unknown]
  - Premature baby [Unknown]
  - Influenza like illness [Unknown]
  - Gait disturbance [Unknown]
  - Nystagmus [Unknown]
  - Pyelonephritis [Unknown]
  - Urinary tract infection [Unknown]
  - Foetal growth restriction [Unknown]
  - Foetal growth abnormality [Unknown]
  - Microphthalmos [Unknown]
  - Retinal detachment [Unknown]
  - Lenticular opacities [Unknown]
  - Metastases to peripheral vascular system [Unknown]
  - Ear malformation [Unknown]
  - Haematotympanum [Unknown]
  - Growth retardation [Unknown]
  - Congenital torticollis [Unknown]
  - Blindness unilateral [Unknown]
  - Deafness bilateral [Unknown]
  - Deafness neurosensory [Unknown]
  - Enuresis [Unknown]
  - Cataract [Unknown]
  - Leukocoria [Unknown]
  - Parinaud syndrome [Unknown]
  - Congenital eye disorder [Unknown]
  - Retinal degeneration [Unknown]
  - Fracture [Unknown]
  - Body height abnormal [Unknown]
  - Muscle disorder [Unknown]
  - Joint stiffness [Unknown]
  - Eye movement disorder [Unknown]
  - Learning disorder [Unknown]
  - Spinal disorder [Unknown]
  - Bone development abnormal [Unknown]
  - Weight abnormal [Unknown]
  - Hypoacusis [Unknown]
  - Asymmetric gluteal fold [Unknown]
  - Cystogram [Unknown]
  - Headache [Unknown]
  - Visual acuity reduced [Unknown]
  - Gastrointestinal tube insertion [Unknown]
  - Magnetic resonance imaging head abnormal [Unknown]
  - Feeding disorder [Unknown]
  - Malaise [Unknown]
  - Speech disorder developmental [Unknown]
  - Vomiting [Unknown]
  - Pruritus [Unknown]
  - Dizziness [Unknown]
  - Ear infection [Unknown]
  - Neck deformity [Unknown]
  - Abdominal pain [Unknown]
  - Rash [Unknown]
  - Rash erythematous [Unknown]
  - Fibrocystic breast disease [Unknown]
  - Breast abscess [Unknown]
  - Nasopharyngitis [Unknown]
  - Foot deformity [Unknown]
  - Myopia [Unknown]
  - Tendon discomfort [Unknown]
  - Arthropathy [Unknown]

NARRATIVE: CASE EVENT DATE: 20111006
